FAERS Safety Report 6072248-4 (Version None)
Quarter: 2009Q1

REPORT INFORMATION
  Report Type: 
  Country: None (occurrence: None)
  Receive Date: 20090206
  Receipt Date: 20090206
  Transmission Date: 20090719
  Serious: Yes (Death, Life-Threatening, Hospitalization)
  Sender: FDA-Public Use
  Company Number: None

PATIENT
  Age: 71 Year
  Sex: Male
  Weight: 72 kg

DRUGS (15)
  1. WARFARIN SODIUM [Suspect]
     Indication: ATRIAL FIBRILLATION
     Dosage: 2.5 MG AND 5 MG QOD ALTERNATING PO
     Route: 048
     Dates: start: 20081031, end: 20081110
  2. AMIODARONE [Concomitant]
  3. COREG [Concomitant]
  4. INSULIN [Concomitant]
  5. TERAZOSIN HCL [Concomitant]
  6. LOPID [Concomitant]
  7. PLAQUENIL [Concomitant]
  8. NAPHCON [Concomitant]
  9. LASIX [Concomitant]
  10. ASPIRIN [Concomitant]
  11. PLAVIX [Concomitant]
  12. OMEPRAZOLE [Concomitant]
  13. SIMVASTATIN [Concomitant]
  14. HYDRALAZINE HCL [Concomitant]
  15. IMDUR [Concomitant]

REACTIONS (5)
  - BRAIN DEATH [None]
  - HAEMORRHAGE INTRACRANIAL [None]
  - INTERNATIONAL NORMALISED RATIO INCREASED [None]
  - POTENTIATING DRUG INTERACTION [None]
  - SUBDURAL HAEMATOMA [None]
